FAERS Safety Report 5971406-4 (Version None)
Quarter: 2008Q4

REPORT INFORMATION
  Report Type: 
  Country: None (occurrence: None)
  Receive Date: 20081130
  Receipt Date: 20081119
  Transmission Date: 20090506
  Serious: Yes (Other)
  Sender: FDA-Public Use
  Company Number: US-PFIZER INC-2008087641

PATIENT
  Sex: Female
  Weight: 49.9 kg

DRUGS (4)
  1. GEODON [Suspect]
     Indication: SCHIZOID PERSONALITY DISORDER
     Route: 048
     Dates: start: 20080904
  2. LAMICTAL [Concomitant]
     Route: 048
  3. EFFEXOR [Concomitant]
     Route: 048
  4. NEXIUM [Concomitant]
     Route: 048

REACTIONS (4)
  - CYANOSIS [None]
  - DYSPNOEA [None]
  - LETHARGY [None]
  - OVERDOSE [None]
